FAERS Safety Report 21672253 (Version 1)
Quarter: 2022Q4

REPORT INFORMATION
  Report Type: Spontaneous
  Country: RU (occurrence: None)
  Receive Date: 20221202
  Receipt Date: 20221202
  Transmission Date: 20230113
  Serious: Yes (Other)
  Sender: FDA-Public Use
  Company Number: RU-ROCHE-3228888

PATIENT
  Age: 42 Year

DRUGS (3)
  1. ATEZOLIZUMAB [Suspect]
     Active Substance: ATEZOLIZUMAB
     Indication: Malignant melanoma
     Dosage: ONCE AT DAYS 1 AND 15
     Route: 041
  2. VEMURAFENIB [Suspect]
     Active Substance: VEMURAFENIB
     Indication: Malignant melanoma
     Dosage: (1,440 MG/DAY) DAILY
     Route: 065
  3. COBIMETINIB [Suspect]
     Active Substance: COBIMETINIB
     Indication: Malignant melanoma
     Dosage: 21 DAYS/7 DAYS OFF
     Route: 065

REACTIONS (3)
  - Skin toxicity [Unknown]
  - Arthralgia [Unknown]
  - Disease progression [Unknown]
